FAERS Safety Report 8849678 (Version 2)
Quarter: 2013Q2

REPORT INFORMATION
  Report Type: Spontaneous
  Country: US (occurrence: None)
  Receive Date: 20120426
  Receipt Date: 20120703
  Transmission Date: 20140414
  Serious: No
  Sender: FDA-Public Use
  Company Number: PHEH2012US004398

PATIENT
  Age: 44 Year
  Sex: Female
  Weight: 80 kg

DRUGS (2)
  1. GILENYA [Suspect]
     Indication: MULTIPLE SCLEROSIS
     Route: 048
     Dates: start: 20120213
  2. DETROL (TOLTERODINE L-TARTRATE) [Concomitant]

REACTIONS (4)
  - Aphagia [None]
  - Fatigue [None]
  - Nausea [None]
  - Dizziness [None]
